FAERS Safety Report 22979921 (Version 4)
Quarter: 2024Q1

REPORT INFORMATION
  Report Type: Report from Study
  Country: US (occurrence: US)
  Receive Date: 20230925
  Receipt Date: 20240301
  Transmission Date: 20240410
  Serious: Yes (Hospitalization, Other)
  Sender: FDA-Public Use
  Company Number: US-BIOVITRUM-2022US06593

PATIENT
  Age: 55 Year
  Sex: Female

DRUGS (4)
  1. KINERET [Suspect]
     Active Substance: ANAKINRA
     Indication: Rheumatoid arthritis
     Route: 058
     Dates: start: 20190618
  2. KINERET [Suspect]
     Active Substance: ANAKINRA
     Dosage: 100MG, EVERY OTHER DAY
     Route: 058
     Dates: start: 201906
  3. KINERET [Suspect]
     Active Substance: ANAKINRA
     Dosage: 100MG, EVERY OTHER DAY
     Route: 058
     Dates: start: 20190910
  4. KINERET [Suspect]
     Active Substance: ANAKINRA
     Dosage: 100MG, DAILY
     Route: 058
     Dates: start: 20190629

REACTIONS (24)
  - Rheumatoid arthritis [Unknown]
  - Atrial fibrillation [Unknown]
  - Cataract [Unknown]
  - Infected fistula [Unknown]
  - Pneumonia [Unknown]
  - Intentional product misuse [Not Recovered/Not Resolved]
  - Product dose omission issue [Unknown]
  - Illness [Unknown]
  - Nasal congestion [Unknown]
  - Pain [Unknown]
  - Malaise [Unknown]
  - Nausea [Unknown]
  - Vomiting [Unknown]
  - Dizziness [Unknown]
  - Blood pressure abnormal [Unknown]
  - Product use issue [Unknown]
  - Product storage error [Unknown]
  - Drug ineffective [Unknown]
  - COVID-19 [Unknown]
  - Injection site rash [Unknown]
  - Injection site pruritus [Unknown]
  - Injection site erythema [Unknown]
  - Injection site pain [Unknown]
  - Intentional dose omission [Unknown]

NARRATIVE: CASE EVENT DATE: 20190910
